FAERS Safety Report 14558540 (Version 3)
Quarter: 2018Q2

REPORT INFORMATION
  Report Type: Spontaneous
  Country: GB (occurrence: GB)
  Receive Date: 20180221
  Receipt Date: 20180504
  Transmission Date: 20180711
  Serious: Yes (Other)
  Sender: FDA-Public Use
  Company Number: GB-ELI_LILLY_AND_COMPANY-GB201802004629

PATIENT
  Age: 74 Year
  Sex: Female
  Weight: 55 kg

DRUGS (3)
  1. LARTRUVO [Suspect]
     Active Substance: OLARATUMAB
     Indication: UTERINE LEIOMYOSARCOMA
     Dosage: 820 MG, UNKNOWN
     Route: 042
     Dates: start: 20171204
  2. OLARATUMAB [Suspect]
     Active Substance: OLARATUMAB
     Indication: UTERINE LEIOMYOSARCOMA
     Dosage: 820 MG, UNKNOWN
     Route: 042
     Dates: start: 20161204
  3. ZOPICLONE [Concomitant]
     Active Substance: ZOPICLONE
     Indication: PRODUCT USED FOR UNKNOWN INDICATION
     Dosage: UNK, UNKNOWN
     Route: 065

REACTIONS (2)
  - Off label use [Unknown]
  - Neutropenic sepsis [Recovered/Resolved]

NARRATIVE: CASE EVENT DATE: 20171212
